FAERS Safety Report 10973357 (Version 1)
Quarter: 2015Q1

REPORT INFORMATION
  Report Type: Spontaneous
  Country: US (occurrence: None)
  Receive Date: 20150331
  Receipt Date: 20150331
  Transmission Date: 20150721
  Serious: Yes (Disabling)
  Sender: FDA-Public Use
  Company Number: None

PATIENT
  Age: 66 Year
  Sex: Female
  Weight: 76.66 kg

DRUGS (3)
  1. FLAXSEED [Concomitant]
     Active Substance: FLAX SEED
  2. VITAMINS [Concomitant]
     Active Substance: VITAMINS
  3. CLEARLAX [Suspect]
     Active Substance: POLYETHYLENE GLYCOL 3350
     Indication: CONSTIPATION
     Dates: start: 20150330

REACTIONS (1)
  - Hypertension [None]

NARRATIVE: CASE EVENT DATE: 20150330
